FAERS Safety Report 18771830 (Version 1)
Quarter: 2021Q1

REPORT INFORMATION
  Report Type: Spontaneous
  Country: US (occurrence: US)
  Receive Date: 20210121
  Receipt Date: 20210121
  Transmission Date: 20210419
  Serious: No
  Sender: FDA-Public Use
  Company Number: US-BAUSCH-BL-2020-037632

PATIENT
  Age: 78 Year
  Sex: Female
  Weight: 61.29 kg

DRUGS (1)
  1. VYZULTA [Suspect]
     Active Substance: LATANOPROSTENE BUNOD
     Indication: INTRAOCULAR PRESSURE TEST ABNORMAL
     Route: 047
     Dates: start: 2018

REACTIONS (2)
  - Product storage error [Unknown]
  - Asthenopia [Recovering/Resolving]

NARRATIVE: CASE EVENT DATE: 2020
